FAERS Safety Report 5136242-X (Version None)
Quarter: 2006Q4

REPORT INFORMATION
  Report Type: 
  Country: None (occurrence: None)
  Receive Date: 20061027
  Receipt Date: 20061019
  Transmission Date: 20070319
  Serious: Yes (Death)
  Sender: FDA-Public Use
  Company Number: JP-NOVOPROD-257849

PATIENT
  Age: 39 Year
  Sex: Male
  Weight: 59 kg

DRUGS (1)
  1. PENFILL 30R CHU [Suspect]
     Dosage: 600 IU, UNK
     Dates: start: 20061017, end: 20061017

REACTIONS (2)
  - COMPLETED SUICIDE [None]
  - INTENTIONAL OVERDOSE [None]
